FAERS Safety Report 8577012-X (Version None)
Quarter: 2012Q3

REPORT INFORMATION
  Report Type: 
  Country: None (occurrence: None)
  Receive Date: 20120807
  Receipt Date: 20120723
  Transmission Date: 20120928
  Serious: Yes (Hospitalization)
  Sender: FDA-Public Use
  Company Number: IN-WATSON-2012-13717

PATIENT
  Age: 6 Day
  Sex: Male

DRUGS (2)
  1. PREDNISOLONE [Suspect]
     Indication: DISSEMINATED INTRAVASCULAR COAGULATION
     Dosage: 3 MG/KG, DAILY
     Route: 048
  2. PREDNISOLONE [Suspect]
     Indication: HAEMANGIOMA

REACTIONS (1)
  - CHOLESTASIS [None]
